FAERS Safety Report 7053315-5 (Version None)
Quarter: 2010Q4

REPORT INFORMATION
  Report Type: 
  Country: None (occurrence: None)
  Receive Date: 20101020
  Receipt Date: 20101007
  Transmission Date: 20110411
  Serious: Yes (Other)
  Sender: FDA-Public Use
  Company Number: PHHY2009BR02731

PATIENT
  Sex: Female
  Weight: 78 kg

DRUGS (3)
  1. EXELON [Suspect]
     Indication: MEMORY IMPAIRMENT
     Dosage: 18MG/10CM2, 1 PATCH/DAY
     Route: 062
  2. EXELON [Suspect]
     Indication: CONFUSIONAL STATE
  3. EXELON [Suspect]
     Indication: ANXIETY

REACTIONS (8)
  - ANXIETY [None]
  - CONFUSIONAL STATE [None]
  - EXPRESSIVE LANGUAGE DISORDER [None]
  - EYE PRURITUS [None]
  - MEMORY IMPAIRMENT [None]
  - NUCLEAR MAGNETIC RESONANCE IMAGING BRAIN ABNORMAL [None]
  - VISUAL IMPAIRMENT [None]
  - WRONG TECHNIQUE IN DRUG USAGE PROCESS [None]
